FAERS Safety Report 7959326-7 (Version None)
Quarter: 2011Q4

REPORT INFORMATION
  Report Type: 
  Country: None (occurrence: None)
  Receive Date: 20111206
  Receipt Date: 20111201
  Transmission Date: 20120403
  Serious: Yes (Death, Hospitalization, Other)
  Sender: FDA-Public Use
  Company Number: US-PFIZER INC-2010021646

PATIENT
  Sex: Male

DRUGS (3)
  1. DILANTIN-125 [Suspect]
     Indication: CONVULSION
     Dosage: 200 MG AT MORNING AND 300 MG AT NIGHT
     Route: 048
  2. DILANTIN [Suspect]
     Indication: CONVULSION
     Dosage: 2 CAPSULES AT MORNING AND 3 CAPSULES AT EVENING
     Route: 048
     Dates: start: 19830816
  3. PHENYTOIN [Suspect]
     Dosage: UNK

REACTIONS (2)
  - STEVENS-JOHNSON SYNDROME [None]
  - GRAND MAL CONVULSION [None]
